FAERS Safety Report 6851399-8 (Version None)
Quarter: 2010Q3

REPORT INFORMATION
  Report Type: 
  Country: None (occurrence: None)
  Receive Date: 20100717
  Receipt Date: 20080116
  Transmission Date: 20110219
  Serious: No
  Sender: FDA-Public Use
  Company Number: US-PFIZER INC-2008006250

PATIENT
  Sex: Female
  Weight: 72.7 kg

DRUGS (4)
  1. CHANTIX [Suspect]
     Indication: SMOKING CESSATION THERAPY
     Route: 048
     Dates: start: 20080101
  2. ANXIOLYTICS [Concomitant]
     Indication: ANXIETY
     Route: 048
  3. ANTACID TAB [Concomitant]
     Indication: DYSPEPSIA
     Route: 048
  4. HMG COA REDUCTASE INHIBITORS [Concomitant]
     Route: 048

REACTIONS (5)
  - ARTHRALGIA [None]
  - ARTHROPATHY [None]
  - FEELING ABNORMAL [None]
  - PAIN IN EXTREMITY [None]
  - SENSATION OF HEAVINESS [None]
